FAERS Safety Report 4672834-X (Version None)
Quarter: 2005Q2

REPORT INFORMATION
  Report Type: 
  Country: None (occurrence: None)
  Receive Date: 20050523
  Receipt Date: 20050513
  Transmission Date: 20051028
  Serious: Yes (Hospitalization, Other)
  Sender: FDA-Public Use
  Company Number: KII-2005-0016592

PATIENT
  Sex: Female

DRUGS (5)
  1. OXYCODONE HCL [Suspect]
     Indication: PAIN
     Dosage: ORAL
     Route: 048
  2. CYCLOBENZAPRINE HCL [Suspect]
     Dosage: ORAL
     Route: 048
  3. COCAINE (COCAINE) [Suspect]
  4. AMPHETAMINE SULFATE [Suspect]
  5. AMPHETAMINE SULFATE [Suspect]

REACTIONS (3)
  - DRUG ABUSER [None]
  - DRUG SCREEN POSITIVE [None]
  - MENTAL STATUS CHANGES [None]
